FAERS Safety Report 11785897 (Version 1)
Quarter: 2015Q4

REPORT INFORMATION
  Report Type: Spontaneous
  Country: JP (occurrence: JP)
  Receive Date: 20151130
  Receipt Date: 20151130
  Transmission Date: 20160305
  Serious: Yes (Other)
  Sender: FDA-Public Use
  Company Number: JP-PFIZER INC-2015399087

PATIENT
  Age: 67 Year
  Sex: Male

DRUGS (1)
  1. SUTENT [Suspect]
     Active Substance: SUNITINIB MALATE
     Indication: RENAL CELL CARCINOMA
     Dosage: 50 MG, CYCLIC (2 WEEK ON, 1 WEEK OFF)
     Route: 048
     Dates: start: 20151105

REACTIONS (4)
  - Pyrexia [Unknown]
  - Bone marrow failure [Unknown]
  - Blood creatinine increased [Unknown]
  - C-reactive protein increased [Unknown]
